FAERS Safety Report 8541754-2 (Version None)
Quarter: 2012Q3

REPORT INFORMATION
  Report Type: 
  Country: None (occurrence: None)
  Receive Date: 20120726
  Receipt Date: 20110902
  Transmission Date: 20120928
  Serious: No
  Sender: FDA-Public Use
  Company Number: US-ASTRAZENECA-2011SE53058

PATIENT
  Age: 49 Year
  Sex: Female
  Weight: 108.9 kg

DRUGS (7)
  1. TRILEPTIL [Concomitant]
  2. BIRTH CONTROL [Concomitant]
     Indication: HORMONE REPLACEMENT THERAPY
  3. GENERIC INDERAL [Concomitant]
  4. OMEPRAZOLE [Concomitant]
  5. ZOLOFT [Concomitant]
  6. VICOUDINE [Concomitant]
  7. SEROQUEL [Suspect]
     Indication: BIPOLAR DISORDER
     Route: 048

REACTIONS (5)
  - ANXIETY [None]
  - INAPPROPRIATE AFFECT [None]
  - TACHYPHRENIA [None]
  - INSOMNIA [None]
  - DRUG DOSE OMISSION [None]
